FAERS Safety Report 10050731 (Version 1)
Quarter: 2014Q2

REPORT INFORMATION
  Report Type: Spontaneous
  Country: US (occurrence: US)
  Receive Date: 20140401
  Receipt Date: 20140401
  Transmission Date: 20141212
  Serious: No
  Sender: FDA-Public Use
  Company Number: US-ASTRAZENECA-2013SE72789

PATIENT
  Age: 9 Year
  Sex: Female
  Weight: 27.2 kg

DRUGS (6)
  1. NEXIUM [Suspect]
     Indication: GASTROOESOPHAGEAL REFLUX DISEASE
     Route: 048
     Dates: start: 20130928
  2. OMEPRAZOLE [Suspect]
     Indication: GASTROOESOPHAGEAL REFLUX DISEASE
     Route: 048
     Dates: start: 201303, end: 201309
  3. SINGULAIR [Concomitant]
     Indication: ASTHMA
     Dosage: 1 TABLET QD
     Route: 048
     Dates: start: 2005, end: 2006
  4. DULERA [Concomitant]
     Indication: ASTHMA
     Route: 055
     Dates: start: 201306
  5. XOPENEX [Concomitant]
     Indication: ASTHMA
     Dosage: 2 PUFFS Q4H PRN
     Route: 055
     Dates: start: 2008
  6. CETIRIZINE HCL [Concomitant]
     Indication: MULTIPLE ALLERGIES
     Dosage: 2 TPS DAILY
     Route: 048
     Dates: start: 2006

REACTIONS (6)
  - Gastrooesophageal reflux disease [Not Recovered/Not Resolved]
  - Dizziness [Unknown]
  - Headache [Unknown]
  - Malaise [Unknown]
  - Vomiting [Unknown]
  - Drug ineffective [Not Recovered/Not Resolved]
